FAERS Safety Report 4526860-1 (Version None)
Quarter: 2004Q4

REPORT INFORMATION
  Report Type: 
  Country: None (occurrence: None)
  Receive Date: 20041213
  Receipt Date: 20041125
  Transmission Date: 20050328
  Serious: Yes (Disabling, Other)
  Sender: FDA-Public Use
  Company Number: PHRM2003FR03152

PATIENT
  Age: 50 Year
  Sex: Female

DRUGS (1)
  1. VISUDYNE [Suspect]
     Indication: RETINAL NEOVASCULARISATION
     Dates: start: 20021003, end: 20021003

REACTIONS (5)
  - DISEASE PROGRESSION [None]
  - MYOPIA [None]
  - RETINAL DEGENERATION [None]
  - RETINAL HAEMORRHAGE [None]
  - UNEVALUABLE EVENT [None]
